FAERS Safety Report 17135301 (Version 1)
Quarter: 2019Q4

REPORT INFORMATION
  Report Type: Spontaneous
  Country: US (occurrence: US)
  Receive Date: 20191210
  Receipt Date: 20191210
  Transmission Date: 20200122
  Serious: No
  Sender: FDA-Public Use
  Company Number: US-PFIZER INC-2019526408

PATIENT
  Age: 58 Year
  Sex: Female
  Weight: 108.8 kg

DRUGS (1)
  1. PRISTIQ EXTENDED-RELEASE [Suspect]
     Active Substance: DESVENLAFAXINE SUCCINATE
     Indication: DEPRESSION
     Dosage: 100 MG, 1X/DAY
     Route: 048
     Dates: start: 2019

REACTIONS (2)
  - Product residue present [Unknown]
  - Malabsorption [Unknown]

NARRATIVE: CASE EVENT DATE: 2019
